FAERS Safety Report 12170303 (Version 2)
Quarter: 2016Q2

REPORT INFORMATION
  Report Type: Report from Study
  Country: JP (occurrence: JP)
  Receive Date: 20160311
  Receipt Date: 20160511
  Transmission Date: 20160815
  Serious: Yes (Life-Threatening, Hospitalization, Disabling, Other)
  Sender: FDA-Public Use
  Company Number: JP-SHIRE-JP201602911

PATIENT
  Age: 73 Year
  Sex: Male

DRUGS (9)
  1. PROMAC                             /00024401/ [Concomitant]
     Active Substance: NITROFURANTOIN
     Indication: PRODUCT USED FOR UNKNOWN INDICATION
     Dosage: 75 MG, UNKNOWN
     Route: 048
  2. CALTAN [Concomitant]
     Active Substance: CALCIUM CARBONATE
     Indication: HYPERPHOSPHATAEMIA
     Dosage: 3000 MG, UNKNOWN
     Route: 048
     Dates: start: 20000318, end: 20150827
  3. PHOSBLOCK [Concomitant]
     Active Substance: FERRIC HYDROXIDE
     Indication: HYPERPHOSPHATAEMIA
     Dosage: 1000 MG, UNKNOWN
     Route: 048
     Dates: start: 20111115, end: 20150827
  4. PHOSBLOCK [Concomitant]
     Active Substance: FERRIC HYDROXIDE
     Dosage: 2500 MG, UNKNOWN
     Route: 048
     Dates: start: 20080804
  5. 405 (LANTHANUM CARBONATE) [Suspect]
     Active Substance: LANTHANUM CARBONATE
     Indication: HYPERPHOSPHATAEMIA
     Dosage: 1000 MG/DAY, UNKNOWN
     Route: 048
     Dates: start: 20090729, end: 20150827
  6. ONEALFA [Concomitant]
     Active Substance: ALFACALCIDOL
     Indication: PRODUCT USED FOR UNKNOWN INDICATION
     Dosage: 0.25 ?G, UNKNOWN
     Route: 048
     Dates: end: 20150827
  7. PHOSBLOCK [Concomitant]
     Active Substance: FERRIC HYDROXIDE
     Dosage: 3000 MG, UNKNOWN
     Route: 048
     Dates: start: 20110810, end: 20111114
  8. ONEALFA [Concomitant]
     Active Substance: ALFACALCIDOL
     Dosage: 0.5 ?G, UNKNOWN
     Route: 048
     Dates: start: 20010510
  9. ROHYPNOL [Concomitant]
     Active Substance: FLUNITRAZEPAM
     Indication: PRODUCT USED FOR UNKNOWN INDICATION
     Dosage: 1 MG, UNKNOWN
     Route: 048

REACTIONS (1)
  - Cerebral infarction [Unknown]

NARRATIVE: CASE EVENT DATE: 20150828
